FAERS Safety Report 25416018 (Version 1)
Quarter: 2025Q2

REPORT INFORMATION
  Report Type: Spontaneous
  Country: GB (occurrence: GB)
  Receive Date: 20250610
  Receipt Date: 20250610
  Transmission Date: 20250717
  Serious: Yes (Other)
  Sender: ABBVIE
  Company Number: None

PATIENT
  Age: 46 Year
  Sex: Male
  Weight: 82 kg

DRUGS (1)
  1. UPADACITINIB [Suspect]
     Active Substance: UPADACITINIB
     Indication: Inflammatory bowel disease
     Dosage: 30MG DAILY
     Route: 048
     Dates: start: 20250115

REACTIONS (2)
  - Tooth loss [Recovered/Resolved]
  - Hyperaesthesia teeth [Unknown]

NARRATIVE: CASE EVENT DATE: 20250101
